FAERS Safety Report 7263006-3 (Version None)
Quarter: 2011Q1

REPORT INFORMATION
  Report Type: 
  Country: None (occurrence: None)
  Receive Date: 20110130
  Receipt Date: 20101105
  Transmission Date: 20110831
  Serious: No
  Sender: FDA-Public Use
  Company Number: US-ABBOTT-10P-163-0675361-00

PATIENT
  Age: 22 Year
  Sex: Male

DRUGS (6)
  1. HYDROCORTH AC [Concomitant]
     Indication: PRODUCT USED FOR UNKNOWN INDICATION
     Route: 054
  2. MERCAPTOPURINE [Concomitant]
     Indication: CROHN'S DISEASE
     Dosage: 50 MG (1/2 TABLET DAILY)
     Route: 048
  3. PERCOCET [Concomitant]
     Indication: PAIN
     Dosage: 10/650 TWICE DAILY AS REQUIRED
     Route: 048
  4. HUMIRA [Suspect]
     Indication: CROHN'S DISEASE
     Dates: start: 20100510
  5. EQUATE ACID CONTROLLER [Concomitant]
     Indication: PRODUCT USED FOR UNKNOWN INDICATION
  6. SLOW FE [Concomitant]
     Indication: PRODUCT USED FOR UNKNOWN INDICATION

REACTIONS (3)
  - INJECTION SITE URTICARIA [None]
  - DRUG DOSE OMISSION [None]
  - DEVICE MALFUNCTION [None]
